FAERS Safety Report 24636321 (Version 1)
Quarter: 2024Q4

REPORT INFORMATION
  Report Type: Report from Study
  Country: PK (occurrence: PK)
  Receive Date: 20241119
  Receipt Date: 20241119
  Transmission Date: 20250115
  Serious: Yes (Death)
  Sender: ROCHE
  Company Number: PK-ROCHE-10000130657

PATIENT
  Age: 43 Year
  Sex: Female

DRUGS (2)
  1. AVASTIN [Suspect]
     Active Substance: BEVACIZUMAB
     Indication: Ovarian cancer
     Route: 042
     Dates: start: 20240812
  2. AVASTIN [Suspect]
     Active Substance: BEVACIZUMAB
     Route: 042

REACTIONS (2)
  - Ovarian cancer [Fatal]
  - Asthenia [Fatal]

NARRATIVE: CASE EVENT DATE: 20241009
